FAERS Safety Report 12346133 (Version 2)
Quarter: 2016Q2

REPORT INFORMATION
  Report Type: Spontaneous
  Country: US (occurrence: US)
  Receive Date: 20160509
  Receipt Date: 20160520
  Transmission Date: 20160815
  Serious: No
  Sender: FDA-Public Use
  Company Number: US-PFIZER INC-2016220115

PATIENT
  Age: 34 Year
  Sex: Female
  Weight: 59 kg

DRUGS (1)
  1. ADVIL [Suspect]
     Active Substance: IBUPROFEN
     Indication: HEADACHE
     Dosage: 2 DF, ABOUT EVERY 6 HOURS AS NEEDED
     Route: 048

REACTIONS (4)
  - Hypoaesthesia oral [Recovered/Resolved]
  - Product taste abnormal [Unknown]
  - Dysgeusia [Unknown]
  - Product physical issue [Unknown]
